FAERS Safety Report 8223772-7 (Version None)
Quarter: 2012Q1

REPORT INFORMATION
  Report Type: 
  Country: None (occurrence: None)
  Receive Date: 20120321
  Receipt Date: 20120312
  Transmission Date: 20120608
  Serious: Yes (Other)
  Sender: FDA-Public Use
  Company Number: US-BAYER-2011-103607

PATIENT
  Age: 53 Year
  Sex: Female
  Weight: 82 kg

DRUGS (9)
  1. OXAPROZIN [Concomitant]
     Dosage: UNK
     Dates: start: 20030101, end: 20040101
  2. YASMIN [Suspect]
     Dosage: UNK
     Dates: start: 20051129, end: 20070101
  3. GABAPENTIN [Concomitant]
     Indication: HOT FLUSH
     Dosage: 300 MG, UNK
     Dates: start: 20070101
  4. IBUPROFEN [Concomitant]
     Dosage: OCCASIONAL
  5. CYMBALTA [Concomitant]
     Indication: DEPRESSION
     Dosage: 30 MG, UNK
     Dates: start: 20050101
  6. CYMBALTA [Concomitant]
     Indication: HOT FLUSH
  7. OXAPROZIN [Concomitant]
  8. GABAPENTIN [Concomitant]
     Indication: NIGHT SWEATS
  9. PAXIL [Concomitant]
     Indication: ANXIETY
     Dosage: UNK
     Dates: start: 20020101, end: 20040101

REACTIONS (6)
  - ANHEDONIA [None]
  - INJURY [None]
  - PULMONARY EMBOLISM [None]
  - PAIN [None]
  - EMOTIONAL DISTRESS [None]
  - FEAR [None]
